FAERS Safety Report 6294907-0 (Version None)
Quarter: 2009Q3

REPORT INFORMATION
  Report Type: 
  Country: None (occurrence: None)
  Receive Date: 20090731
  Receipt Date: 20090731
  Transmission Date: 20100115
  Serious: Yes (Other)
  Sender: FDA-Public Use
  Company Number: None

PATIENT
  Age: 55 Year
  Sex: Female
  Weight: 65.7716 kg

DRUGS (1)
  1. ONE A DAY WOMEN'S 2 0 ONE A DAY VITAMINS [Suspect]
     Indication: VITAMIN SUPPLEMENTATION
     Dosage: 1 PACKET TO 16.9 OZ WATER PO, ONE TIME
     Route: 048
     Dates: start: 20090726, end: 20090726

REACTIONS (4)
  - CHEST DISCOMFORT [None]
  - LARYNGITIS [None]
  - LIP SWELLING [None]
  - PARAESTHESIA ORAL [None]
